FAERS Safety Report 4734728-0 (Version None)
Quarter: 2005Q3

REPORT INFORMATION
  Report Type: 
  Country: None (occurrence: None)
  Receive Date: 20050804
  Receipt Date: 20050715
  Transmission Date: 20060218
  Serious: Yes (Death)
  Sender: FDA-Public Use
  Company Number: US-GLAXOSMITHKLINE-A0566779A

PATIENT
  Sex: Female
  Weight: 80.9 kg

DRUGS (1)
  1. LAMICTAL [Suspect]
     Indication: PARTIAL SEIZURES
     Route: 048
     Dates: start: 20040101, end: 20050701

REACTIONS (2)
  - CONVULSION [None]
  - DEATH [None]
